FAERS Safety Report 8536437-9 (Version None)
Quarter: 2012Q3

REPORT INFORMATION
  Report Type: 
  Country: None (occurrence: None)
  Receive Date: 20120711
  Receipt Date: 20120628
  Transmission Date: 20120928
  Serious: Yes (Other)
  Sender: FDA-Public Use
  Company Number: GGEL20120600811

PATIENT
  Age: 52 Year
  Sex: Male

DRUGS (4)
  1. ATAZANAVIR (ATAZANAVIR) (ATAZANAVIR) [Concomitant]
  2. FLUCONAZOLE [Suspect]
     Indication: ORAL CANDIDIASIS
     Dosage: 400 MILLIGRAM, 1 IN 1 D, ORAL
     Route: 048
  3. RITONAVIR [Suspect]
     Indication: HIV INFECTION
  4. EFAVIRENZ [Concomitant]

REACTIONS (9)
  - ODYNOPHAGIA [None]
  - CUSHING'S SYNDROME [None]
  - MUSCULAR WEAKNESS [None]
  - MUSCLE SPASMS [None]
  - OEDEMA PERIPHERAL [None]
  - ADRENAL INSUFFICIENCY [None]
  - DYSPHONIA [None]
  - OEDEMA [None]
  - STOMATITIS [None]
